FAERS Safety Report 4732055-9 (Version None)
Quarter: 2005Q3

REPORT INFORMATION
  Report Type: 
  Country: None (occurrence: None)
  Receive Date: 20050722
  Receipt Date: 20050202
  Transmission Date: 20060218
  Serious: Yes (Hospitalization)
  Sender: FDA-Public Use
  Company Number: 2005SP000031

PATIENT
  Age: 6 Year
  Sex: Male
  Weight: 40.8237 kg

DRUGS (8)
  1. XOPENEX [Suspect]
     Indication: ASTHMA
     Dosage: 1.25 MG/3ML;INHALATION
     Route: 055
     Dates: start: 20050101
  2. PREDNISONE [Concomitant]
  3. ADVAIR DISKUS 500/50 [Concomitant]
  4. SINGULAIR [Concomitant]
  5. ZYRTEC [Concomitant]
  6. NASONEX [Concomitant]
  7. FLOVENT [Concomitant]
  8. ALBUTEROL [Concomitant]

REACTIONS (2)
  - ASTHMA [None]
  - DRUG INEFFECTIVE [None]
